FAERS Safety Report 6430100-6 (Version None)
Quarter: 2009Q4

REPORT INFORMATION
  Report Type: 
  Country: None (occurrence: None)
  Receive Date: 20091106
  Receipt Date: 20091023
  Transmission Date: 20100525
  Serious: Yes (Other)
  Sender: FDA-Public Use
  Company Number: US-BRISTOL-MYERS SQUIBB COMPANY-14834006

PATIENT
  Age: 71 Year
  Sex: Male

DRUGS (7)
  1. COUMADIN [Suspect]
  2. METOPROLOL TARTRATE [Suspect]
     Dosage: METOPROLOL SOLN, 03OCT09-OCT09,IV
     Route: 048
     Dates: start: 20091003, end: 20091001
  3. MULTAQ [Suspect]
     Indication: CARDIOVERSION
     Route: 048
     Dates: start: 20091003
  4. MULTAQ [Suspect]
     Indication: ATRIAL FIBRILLATION
     Route: 048
     Dates: start: 20091003
  5. CARDIZEM [Suspect]
  6. HEPARIN [Concomitant]
     Route: 065
  7. LISINOPRIL [Concomitant]
     Route: 065

REACTIONS (2)
  - BRADYCARDIA [None]
  - HYPOTENSION [None]
